FAERS Safety Report 10527548 (Version 2)
Quarter: 2014Q4

REPORT INFORMATION
  Report Type: Spontaneous
  Country: JP (occurrence: None)
  Receive Date: 20141016
  Receipt Date: 20141030
  Transmission Date: 20150528
  Serious: Yes (Other)
  Sender: FDA-Public Use
  Company Number: A201411146

PATIENT
  Age: 82 Year
  Sex: Male
  Weight: 40 kg

DRUGS (6)
  1. WARFARIN (WARFARIN) [Suspect]
     Active Substance: WARFARIN
     Indication: MYOCARDIAL INFARCTION
     Route: 048
     Dates: end: 20140923
  2. NICORANDIL TABLET [Concomitant]
  3. ARTIST (CARVEDILOL) (CARVEDILOL) [Concomitant]
     Active Substance: CARVEDILOL
  4. TIVICAY [Suspect]
     Active Substance: DOLUTEGRAVIR SODIUM
     Indication: HIV INFECTION
     Route: 048
     Dates: start: 20140724, end: 20140923
  5. BAYASPIRIN (ACETYLSALICYLIC ACID) (ACETYLSALICYLIC ACID) [Concomitant]
     Active Substance: ASPIRIN
  6. EPZICOM (ABACAVIR SULFATE, LAMIVUDINE) TABLET [Concomitant]

REACTIONS (3)
  - Loss of consciousness [None]
  - Purpura [None]
  - Seizure [None]

NARRATIVE: CASE EVENT DATE: 20140923
